FAERS Safety Report 17225946 (Version 1)
Quarter: 2020Q1

REPORT INFORMATION
  Report Type: Report from Study
  Country: US (occurrence: US)
  Receive Date: 20200102
  Receipt Date: 20200102
  Transmission Date: 20200409
  Serious: Yes (Death)
  Sender: FDA-Public Use
  Company Number: US-ACTELION-A-NJ2017-160119

PATIENT
  Age: 70 Year
  Sex: Male

DRUGS (5)
  1. REMODULIN [Suspect]
     Active Substance: TREPROSTINIL
     Dosage: 11.6 NG/KG, PER MIN
     Route: 058
     Dates: start: 20170706
  2. TRACLEER [Suspect]
     Active Substance: BOSENTAN
     Indication: PULMONARY ARTERIAL HYPERTENSION
     Dosage: 125 MG, BID
     Route: 048
     Dates: start: 20160808
  3. SILDENAFIL. [Concomitant]
     Active Substance: SILDENAFIL
     Dosage: 20 MG, TID
     Route: 065
     Dates: start: 20140731
  4. REMODULIN [Suspect]
     Active Substance: TREPROSTINIL
     Indication: PRODUCT USED FOR UNKNOWN INDICATION
     Dosage: 33.8 NG/KG, PER MIN
     Route: 058
     Dates: start: 20170726
  5. REMODULIN [Suspect]
     Active Substance: TREPROSTINIL
     Dosage: 44.4 NG/KG, PER MIN
     Route: 058
     Dates: start: 20170706

REACTIONS (13)
  - Hyperhidrosis [Not Recovered/Not Resolved]
  - Abdominal pain lower [Not Recovered/Not Resolved]
  - Death [Fatal]
  - Diarrhoea [Recovered/Resolved]
  - Infusion site swelling [Unknown]
  - Vomiting [Unknown]
  - Peripheral coldness [Unknown]
  - Headache [Unknown]
  - Asthenia [Not Recovered/Not Resolved]
  - Infusion site pain [Not Recovered/Not Resolved]
  - Hypoaesthesia [Unknown]
  - Infusion site erythema [Unknown]
  - Pain in extremity [Unknown]

NARRATIVE: CASE EVENT DATE: 20170904
